FAERS Safety Report 14964396 (Version 1)
Quarter: 2018Q2

REPORT INFORMATION
  Report Type: Spontaneous
  Country: US (occurrence: US)
  Receive Date: 20180601
  Receipt Date: 20180601
  Transmission Date: 20180711
  Serious: Yes (Hospitalization)
  Sender: FDA-Public Use
  Company Number: US-WEST-WARD PHARMACEUTICALS CORP.-US-H14001-18-04329

PATIENT
  Sex: Male
  Weight: 79 kg

DRUGS (3)
  1. PREDNISONE. [Suspect]
     Active Substance: PREDNISONE
     Indication: PROSTATE CANCER
     Route: 048
  2. ABIRATERONE ACETATE. [Suspect]
     Active Substance: ABIRATERONE ACETATE
     Indication: PROSTATE CANCER
     Route: 048
  3. ENZALUTAMIDE [Suspect]
     Active Substance: ENZALUTAMIDE
     Indication: PROSTATE CANCER
     Route: 048
     Dates: start: 20180308

REACTIONS (17)
  - Pneumonia [Unknown]
  - Fluid retention [Unknown]
  - Atrioventricular block second degree [Recovered/Resolved]
  - Pericardial effusion [Unknown]
  - Lung infiltration [Unknown]
  - Leukocytosis [Unknown]
  - Bradycardia [Unknown]
  - Nausea [Unknown]
  - Atelectasis [Unknown]
  - Hypotension [Unknown]
  - Bundle branch block right [Unknown]
  - Off label use [Unknown]
  - Pain in extremity [Unknown]
  - Inferior vena cava dilatation [Unknown]
  - Blood lactic acid increased [Unknown]
  - Sinus bradycardia [Unknown]
  - Anaemia [Unknown]

NARRATIVE: CASE EVENT DATE: 20180127
